FAERS Safety Report 8896355 (Version 1)
Quarter: 2012Q4

REPORT INFORMATION
  Report Type: Spontaneous
  Country: US (occurrence: None)
  Receive Date: 20121031
  Receipt Date: 20121031
  Transmission Date: 20130627
  Serious: Yes (Hospitalization, Other)
  Sender: FDA-Public Use
  Company Number: IMP_06041_2012

PATIENT
  Age: 27 Year
  Sex: Female

DRUGS (1)
  1. CABERGOLINE [Suspect]
     Indication: PROLACTINOMA
     Dosage: (0.5 mg 2x/week)

REACTIONS (6)
  - Cerebrospinal fluid leakage [None]
  - Headache [None]
  - Vomiting [None]
  - Pneumocephalus [None]
  - Cerebrospinal fluid leakage [None]
  - Blood prolactin increased [None]
